FAERS Safety Report 6413568-0 (Version None)
Quarter: 2009Q4

REPORT INFORMATION
  Report Type: 
  Country: None (occurrence: None)
  Receive Date: 20091026
  Receipt Date: 20091014
  Transmission Date: 20100525
  Serious: Yes (Hospitalization)
  Sender: FDA-Public Use
  Company Number: DE-ABBOTT-09P-062-0603075-00

PATIENT
  Age: 68 Year
  Sex: Male
  Weight: 88 kg

DRUGS (1)
  1. HUMIRA [Suspect]
     Indication: PSORIASIS
     Dates: start: 20080418

REACTIONS (2)
  - ATELECTASIS [None]
  - POST PROCEDURAL PNEUMONIA [None]
